FAERS Safety Report 12350965 (Version 1)
Quarter: 2016Q2

REPORT INFORMATION
  Report Type: Spontaneous
  Country: US (occurrence: US)
  Receive Date: 20160422
  Receipt Date: 20160422
  Transmission Date: 20160815
  Serious: Yes (Death)
  Sender: FDA-Public Use
  Company Number: US-MALLINCKRODT-T201601273

PATIENT
  Age: 61 Year
  Sex: Male

DRUGS (6)
  1. H.P. ACTHAR [Suspect]
     Active Substance: CORTICOTROPIN
     Indication: GLOMERULONEPHRITIS MEMBRANOUS
     Dosage: 80 UNITS TWICE WEEKLY
     Route: 065
     Dates: start: 201603
  2. ALDACTONE [Concomitant]
     Active Substance: SPIRONOLACTONE
  3. H.P. ACTHAR [Suspect]
     Active Substance: CORTICOTROPIN
     Indication: NEPHROTIC SYNDROME
  4. METOPROLOL. [Concomitant]
     Active Substance: METOPROLOL
  5. LASIX [Concomitant]
     Active Substance: FUROSEMIDE
  6. LABETALOL [Concomitant]
     Active Substance: LABETALOL\LABETALOL HYDROCHLORIDE

REACTIONS (2)
  - Cardiac arrest [Fatal]
  - Acute myocardial infarction [Fatal]

NARRATIVE: CASE EVENT DATE: 20160331
